FAERS Safety Report 19493186 (Version 7)
Quarter: 2022Q2

REPORT INFORMATION
  Report Type: Report from Study
  Country: NL (occurrence: NL)
  Receive Date: 20210705
  Receipt Date: 20220512
  Transmission Date: 20220721
  Serious: Yes (Life-Threatening)
  Sender: FDA-Public Use
  Company Number: NL-ABBVIE-21K-114-3976885-00

PATIENT
  Sex: Male

DRUGS (10)
  1. CARBIDOPA\LEVODOPA [Suspect]
     Active Substance: CARBIDOPA\LEVODOPA
     Indication: Parkinson^s disease
     Route: 050
     Dates: start: 20110711
  2. CARBIDOPA\LEVODOPA [Suspect]
     Active Substance: CARBIDOPA\LEVODOPA
     Dosage: MD: 6.5 ML, CD: 5.3 ML/H, ED: 3.0 ML, CND: 2.5 ML/H, END: 3 ML
     Route: 050
  3. CARBIDOPA\LEVODOPA [Suspect]
     Active Substance: CARBIDOPA\LEVODOPA
     Dosage: ND 0.0 ML; CND 2.7 ML/H; END 2.5 ML
     Route: 050
  4. CARBIDOPA\LEVODOPA [Suspect]
     Active Substance: CARBIDOPA\LEVODOPA
     Dosage: MD 5.7 ML; CD 5.3 ML/H; ED 2.0 ML; CND 2.7 ML/H; END 2.5 ML
     Route: 050
  5. CARBIDOPA\LEVODOPA [Suspect]
     Active Substance: CARBIDOPA\LEVODOPA
     Dosage: MD 5.7 ML; CD 5.5 ML/H; ED 2.0 ML; CND 2.9 ML/H; END 2.5 ML
     Route: 050
  6. CLONAZEPAM [Concomitant]
     Active Substance: CLONAZEPAM
     Indication: Product used for unknown indication
  7. BACLOFEN [Concomitant]
     Active Substance: BACLOFEN
     Indication: Product used for unknown indication
  8. RITUXIMAB [Concomitant]
     Active Substance: RITUXIMAB
     Indication: Polyneuropathy
  9. RITUXIMAB [Concomitant]
     Active Substance: RITUXIMAB
     Indication: Immunomodulatory therapy
  10. POLYETHYLENE GLYCOL 4000 [Concomitant]
     Active Substance: POLYETHYLENE GLYCOL 4000
     Indication: Defaecation disorder

REACTIONS (31)
  - Spinal cord neoplasm [Not Recovered/Not Resolved]
  - Neuralgia [Not Recovered/Not Resolved]
  - Pain in extremity [Not Recovered/Not Resolved]
  - Poor quality sleep [Not Recovered/Not Resolved]
  - Cognitive disorder [Unknown]
  - Memory impairment [Unknown]
  - General physical health deterioration [Not Recovered/Not Resolved]
  - Emotional distress [Not Recovered/Not Resolved]
  - Gait inability [Not Recovered/Not Resolved]
  - Hypophagia [Not Recovered/Not Resolved]
  - Living in residential institution [Not Recovered/Not Resolved]
  - Medical device site dryness [Unknown]
  - Posture abnormal [Not Recovered/Not Resolved]
  - Loss of personal independence in daily activities [Unknown]
  - Nerve compression [Unknown]
  - Fungal skin infection [Unknown]
  - Disturbance in attention [Unknown]
  - Stress [Not Recovered/Not Resolved]
  - Decreased appetite [Not Recovered/Not Resolved]
  - Decreased appetite [Recovered/Resolved]
  - Weight decreased [Not Recovered/Not Resolved]
  - Pain [Not Recovered/Not Resolved]
  - Stoma site irritation [Unknown]
  - Anxiety [Not Recovered/Not Resolved]
  - Thinking abnormal [Unknown]
  - Dyskinesia [Unknown]
  - Hallucination [Recovering/Resolving]
  - On and off phenomenon [Unknown]
  - Therapeutic product effect incomplete [Not Recovered/Not Resolved]
  - Sleep disorder [Not Recovered/Not Resolved]
  - Stoma site erythema [Unknown]

NARRATIVE: CASE EVENT DATE: 20210101
